FAERS Safety Report 26066510 (Version 2)
Quarter: 2025Q4

REPORT INFORMATION
  Report Type: Spontaneous
  Country: US (occurrence: US)
  Receive Date: 20251119
  Receipt Date: 20251119
  Transmission Date: 20260118
  Serious: Yes (Hospitalization)
  Sender: NOVO NORDISK
  Company Number: US-NOVOPROD-1425132

PATIENT
  Age: 57 Year
  Sex: Male

DRUGS (5)
  1. NOVOLOG [Suspect]
     Active Substance: INSULIN ASPART
     Indication: Type 2 diabetes mellitus
     Dosage: 28 IU, TID
     Route: 058
     Dates: start: 2023
  2. NOVOLOG [Suspect]
     Active Substance: INSULIN ASPART
     Dosage: 40 IU, TID
     Route: 058
     Dates: start: 2023
  3. NOVOLOG [Suspect]
     Active Substance: INSULIN ASPART
     Indication: Type 2 diabetes mellitus
     Dosage: 28 IU, TID
     Route: 058
     Dates: start: 2023
  4. NOVOLOG [Suspect]
     Active Substance: INSULIN ASPART
     Dosage: 40 IU, TID
     Route: 058
  5. SEMGLEE (INSULIN GLARGINE-YFGN) [Concomitant]
     Active Substance: INSULIN GLARGINE-YFGN
     Indication: Type 2 diabetes mellitus

REACTIONS (2)
  - Diabetes mellitus inadequate control [Recovered/Resolved]
  - Product quality issue [Not Recovered/Not Resolved]

NARRATIVE: CASE EVENT DATE: 20250401
